FAERS Safety Report 15614703 (Version 4)
Quarter: 2018Q4

REPORT INFORMATION
  Report Type: Report from Study
  Country: FR (occurrence: FR)
  Receive Date: 20181113
  Receipt Date: 20181210
  Transmission Date: 20190205
  Serious: Yes (Death, Hospitalization, Other)
  Sender: FDA-Public Use
  Company Number: FR-BRISTOL-MYERS SQUIBB COMPANY-BMS-2018-104851

PATIENT
  Age: 74 Year
  Sex: Male
  Weight: 74 kg

DRUGS (1)
  1. NIVOLUMAB [Suspect]
     Active Substance: NIVOLUMAB
     Indication: SQUAMOUS CELL CARCINOMA OF HEAD AND NECK
     Dosage: 220 MG, UNK
     Route: 042
     Dates: start: 20180406, end: 20181005

REACTIONS (4)
  - Cough [Fatal]
  - Lung disorder [Fatal]
  - Dyspnoea [Fatal]
  - Pneumonia [Fatal]

NARRATIVE: CASE EVENT DATE: 201810
